FAERS Safety Report 8055997 (Version 4)
Quarter: 2013Q4

REPORT INFORMATION
  Report Type: Spontaneous
  Country: US (occurrence: None)
  Receive Date: 20110714
  Receipt Date: 20131122
  Transmission Date: 20140711
  Serious: Yes (Other)
  Sender: FDA-Public Use
  Company Number: 969054

PATIENT
  Age: 55 Year
  Sex: Male
  Weight: 76.8 kg

DRUGS (4)
  1. NIPENT [Suspect]
     Indication: CHRONIC LYMPHOCYTIC LEUKAEMIA
     Dosage: 4 MG/M2, DAY 1 OF WKS 1, 5, 9, 13, 17, 21),
  2. ALEMTUZUMAB [Suspect]
     Indication: CHRONIC LYMPHOCYTIC LEUKAEMIA
     Dosage: 30 MG, TIW X 18 WKS, SUBCUTANEOUS
     Route: 058
  3. CYCLOPHOSPHAMIDE [Suspect]
     Indication: CHRONIC LYMPHOCYTIC LEUKAEMIA
     Dosage: 600 MG/M2, DAY 1OF WEEKS 1, 5, 9, 13, 17, 21
  4. RITUXIMAB [Suspect]
     Indication: CHRONIC LYMPHOCYTIC LEUKAEMIA
     Dosage: 375 MG/M2 ON WEEKS 1, 5, 9, 13, 17, 21: 1 3 DAYS/WEEK FOR WEEK 1 AND 1 DAY/WEEK  FOR WEEKS 5-21,

REACTIONS (7)
  - Sinus congestion [None]
  - Lymphopenia [None]
  - Chills [None]
  - Haemoglobin decreased [None]
  - Haematocrit decreased [None]
  - White blood cell count decreased [None]
  - Tumour associated fever [None]
